FAERS Safety Report 4712957-X (Version None)
Quarter: 2005Q3

REPORT INFORMATION
  Report Type: 
  Country: None (occurrence: None)
  Receive Date: 20050712
  Receipt Date: 20050712
  Transmission Date: 20060218
  Serious: Yes (Life-Threatening, Hospitalization)
  Sender: FDA-Public Use
  Company Number: None

PATIENT
  Sex: Male
  Weight: 68.0396 kg

DRUGS (16)
  1. LEVAQUIN [Suspect]
     Indication: RESPIRATORY TRACT INFECTION
     Dosage: 500 MG   DAILY   ORAL
     Route: 048
     Dates: start: 20050531, end: 20050608
  2. ACTONEL [Concomitant]
  3. NAMENDA [Concomitant]
  4. CILOSTAZOL [Concomitant]
  5. FLOMAX [Concomitant]
  6. PLAVIX [Concomitant]
  7. GLUCOSAMINE    CHONDROITIN [Concomitant]
  8. CHOLEAST RED YEAST RICE EXTRACT [Concomitant]
  9. CALCIUM CARBONATE [Concomitant]
  10. ASPIRIN [Concomitant]
  11. MAGNESIUM OROTATE [Concomitant]
  12. SAW PALMETTO STANDARIZED EXTRACT [Concomitant]
  13. MULTI-VITAMIN [Concomitant]
  14. B COMPLEX AND C VITAMIN [Concomitant]
  15. VITAMIN D [Concomitant]
  16. DEHYDRONE -DHEA- [Concomitant]

REACTIONS (8)
  - ASTHENIA [None]
  - CONFUSIONAL STATE [None]
  - DEHYDRATION [None]
  - DIFFICULTY IN WALKING [None]
  - HYPERCALCAEMIA [None]
  - HYPOKALAEMIA [None]
  - INSOMNIA [None]
  - POLLAKIURIA [None]
